FAERS Safety Report 7868190-6 (Version None)
Quarter: 2011Q4

REPORT INFORMATION
  Report Type: 
  Country: None (occurrence: None)
  Receive Date: 20111028
  Receipt Date: 20111019
  Transmission Date: 20120403
  Serious: Yes (Hospitalization)
  Sender: FDA-Public Use
  Company Number: PHHY2011GB92264

PATIENT
  Age: 75 Year
  Sex: Female
  Weight: 96 kg

DRUGS (12)
  1. BENDROFLUMETHIAZIDE [Concomitant]
     Dosage: 2.5 MG, QD
  2. CITALOPRAM HYDROBROMIDE [Concomitant]
     Dosage: 20 MG, QD
  3. CLOPIDOGREL [Concomitant]
     Dosage: 75 MG, QD
  4. LORATADINE [Concomitant]
     Dosage: 10 MG, QD
  5. MOVIPREP [Concomitant]
  6. IRBESARTAN [Suspect]
     Indication: HYPERTENSION
     Dosage: 150 MG, QD
     Route: 048
     Dates: start: 20100513, end: 20111002
  7. CHLORPHENIRAMINE MALEATE [Concomitant]
     Dosage: 4 MG, BID
  8. AMOXICILLIN [Suspect]
     Indication: LOWER RESPIRATORY TRACT INFECTION
     Dosage: 250 MG, TID
     Route: 048
     Dates: start: 20110930, end: 20111002
  9. COSOPT [Concomitant]
     Dosage: 1 GTT, BID
  10. LATANOPROST [Concomitant]
     Dosage: 1 GTT, QD
  11. TRAMADOL HYDROCHLORIDE/ACETAMINOPHEN [Concomitant]
  12. RISPERIDONE [Suspect]
     Indication: AGITATION
     Dosage: 1 MG, BID
     Route: 048
     Dates: start: 20110929, end: 20111002

REACTIONS (2)
  - ANGIOEDEMA [None]
  - SWOLLEN TONGUE [None]
